FAERS Safety Report 8905968 (Version 2)
Quarter: 2012Q4

REPORT INFORMATION
  Report Type: 
  Country: US (occurrence: US)
  Receive Date: 20121112
  Receipt Date: 20121120
  Transmission Date: 20130627
  Serious: Yes (Other)
  Sender: FDA-Public Use
  Company Number: US-PFIZER INC-2012280784

PATIENT
  Sex: Female

DRUGS (4)
  1. AMIODARONE HCL [Suspect]
     Indication: ATRIAL FIBRILLATION
     Dosage: UNK
  2. PREDNISONE [Suspect]
     Indication: SARCOIDOSIS
     Dosage: 40 mg/day
  3. PREDNISONE [Suspect]
     Dosage: 2.5 mg/day
  4. PROZAC [Suspect]
     Dosage: UNK

REACTIONS (9)
  - Atrial fibrillation [Unknown]
  - Insomnia [Recovering/Resolving]
  - Anxiety [Recovering/Resolving]
  - Vision blurred [Recovering/Resolving]
  - Contusion [Recovering/Resolving]
  - Feeling abnormal [Recovering/Resolving]
  - Weight decreased [Recovering/Resolving]
  - Osteoarthritis [Recovering/Resolving]
  - Diarrhoea [Unknown]
